FAERS Safety Report 19242071 (Version 2)
Quarter: 2022Q2

REPORT INFORMATION
  Report Type: Report from Study
  Country: ES (occurrence: ES)
  Receive Date: 20210510
  Receipt Date: 20220510
  Transmission Date: 20220721
  Serious: Yes (Other)
  Sender: FDA-Public Use
  Company Number: ES-002147023-NVSC2021ES088905

PATIENT

DRUGS (1)
  1. RITUXIMAB [Suspect]
     Active Substance: RITUXIMAB
     Indication: Nervous system disorder
     Dosage: UNK
     Route: 065
     Dates: start: 201201, end: 202001

REACTIONS (2)
  - Breast cancer [Unknown]
  - Off label use [Unknown]
